FAERS Safety Report 6643151-3 (Version None)
Quarter: 2010Q1

REPORT INFORMATION
  Report Type: 
  Country: None (occurrence: None)
  Receive Date: 20100319
  Receipt Date: 20100309
  Transmission Date: 20100710
  Serious: Yes (Other)
  Sender: FDA-Public Use
  Company Number: PHHY2010FR15449

PATIENT
  Age: 82 Year
  Sex: Female

DRUGS (4)
  1. EXELON [Suspect]
     Dosage: 3 MG, BID
  2. CARDENSIEL [Concomitant]
  3. ADANCOR [Concomitant]
  4. MEMANTINE HCL [Concomitant]

REACTIONS (1)
  - RENAL DISORDER [None]
